FAERS Safety Report 24857967 (Version 3)
Quarter: 2025Q3

REPORT INFORMATION
  Report Type: Spontaneous
  Country: US (occurrence: US)
  Receive Date: 20250117
  Receipt Date: 20250922
  Transmission Date: 20251021
  Serious: No
  Sender: SANOFI AVENTIS
  Company Number: US-SA-2025SA013149

PATIENT
  Age: 27 Year
  Sex: Female

DRUGS (1)
  1. REZUROCK [Suspect]
     Active Substance: BELUMOSUDIL

REACTIONS (4)
  - Lung disorder [Unknown]
  - Condition aggravated [Unknown]
  - Nasopharyngitis [Unknown]
  - Surgery [Unknown]
